FAERS Safety Report 13092971 (Version 1)
Quarter: 2017Q1

REPORT INFORMATION
  Report Type: Spontaneous
  Country: US (occurrence: US)
  Receive Date: 20170105
  Receipt Date: 20170105
  Transmission Date: 20170428
  Serious: No
  Sender: FDA-Public Use
  Company Number: None

PATIENT
  Age: 69 Year
  Sex: Male
  Weight: 171.6 kg

DRUGS (2)
  1. NEOSTIGMINE [Suspect]
     Active Substance: NEOSTIGMINE
     Indication: INTESTINAL OBSTRUCTION
     Route: 042
     Dates: start: 20151006, end: 20151006
  2. NEOSTIGMINE [Suspect]
     Active Substance: NEOSTIGMINE
     Indication: ILEUS
     Route: 042
     Dates: start: 20151006, end: 20151006

REACTIONS (1)
  - Bradycardia [None]

NARRATIVE: CASE EVENT DATE: 20151006
